FAERS Safety Report 18867064 (Version 6)
Quarter: 2021Q3

REPORT INFORMATION
  Report Type: Spontaneous
  Country: PL (occurrence: PL)
  Receive Date: 20210209
  Receipt Date: 20210721
  Transmission Date: 20211014
  Serious: Yes (Hospitalization, Other)
  Sender: FDA-Public Use
  Company Number: PL-MYLANLABS-2021M1007204

PATIENT
  Age: 18 Year
  Sex: Female

DRUGS (13)
  1. TRAZODONE [Suspect]
     Active Substance: TRAZODONE HYDROCHLORIDE
     Indication: NEUROLOGICAL SYMPTOM
     Dosage: UNK
     Route: 065
  2. CLORAZEPATE DIPOTASSIUM. [Suspect]
     Active Substance: CLORAZEPATE DIPOTASSIUM
     Indication: NEUROLOGICAL SYMPTOM
     Dosage: UNK
     Route: 065
  3. PREGABALIN. [Suspect]
     Active Substance: PREGABALIN
     Indication: BORDERLINE PERSONALITY DISORDER
  4. CLORAZEPATE DIPOTASSIUM. [Suspect]
     Active Substance: CLORAZEPATE DIPOTASSIUM
     Indication: BORDERLINE PERSONALITY DISORDER
  5. VENLAFAXINE [Suspect]
     Active Substance: VENLAFAXINE HYDROCHLORIDE
     Indication: BORDERLINE PERSONALITY DISORDER
  6. VENLAFAXINE [Suspect]
     Active Substance: VENLAFAXINE HYDROCHLORIDE
     Indication: NEUROLOGICAL SYMPTOM
     Dosage: UNK
     Route: 065
  7. QUETIAPINE. [Suspect]
     Active Substance: QUETIAPINE
     Indication: NEUROLOGICAL SYMPTOM
     Dosage: UNK
     Route: 065
  8. PERAZINE [Suspect]
     Active Substance: PERAZINE
     Indication: NEUROLOGICAL SYMPTOM
     Dosage: UNK
     Route: 065
  9. PERAZINE [Suspect]
     Active Substance: PERAZINE
     Indication: BORDERLINE PERSONALITY DISORDER
  10. QUETIAPINE. [Suspect]
     Active Substance: QUETIAPINE
     Indication: BORDERLINE PERSONALITY DISORDER
  11. PREGABALIN. [Suspect]
     Active Substance: PREGABALIN
     Indication: NEUROLOGICAL SYMPTOM
     Dosage: UNK
     Route: 048
  12. TRAZODONE [Suspect]
     Active Substance: TRAZODONE HYDROCHLORIDE
     Indication: BORDERLINE PERSONALITY DISORDER
  13. PROCHLORPERAZINE /00013302/ [Suspect]
     Active Substance: PROCHLORPERAZINE EDISYLATE
     Indication: BORDERLINE PERSONALITY DISORDER
     Dosage: UNK

REACTIONS (11)
  - Dizziness [Unknown]
  - Off label use [Unknown]
  - Irritability [Unknown]
  - Refusal of treatment by patient [Unknown]
  - Drug abuse [Unknown]
  - Drug ineffective [Unknown]
  - Altered state of consciousness [Unknown]
  - Anxiety [Unknown]
  - Confusional state [Unknown]
  - Treatment noncompliance [Unknown]
  - Withdrawal syndrome [Unknown]
